FAERS Safety Report 24036938 (Version 1)
Quarter: 2024Q3

REPORT INFORMATION
  Report Type: Report from Study
  Country: US (occurrence: US)
  Receive Date: 20240701
  Receipt Date: 20240701
  Transmission Date: 20241017
  Serious: No
  Sender: APELLIS PHARMACEUTICALS
  Company Number: US-APELLIS PHARMACEUTICALS-APL-2024-004401

PATIENT

DRUGS (3)
  1. PEGCETACOPLAN [Suspect]
     Active Substance: PEGCETACOPLAN
     Indication: Paroxysmal nocturnal haemoglobinuria
     Dosage: 1080 MILLIGRAM, TWICE WEEKLY
     Route: 058
     Dates: start: 20240403
  2. EPOGEN [Concomitant]
     Active Substance: ERYTHROPOIETIN
     Indication: Haemoglobin decreased
     Dosage: 20 000 UNITS 4X PER WEEK
     Dates: end: 202405
  3. EPOGEN [Concomitant]
     Active Substance: ERYTHROPOIETIN
     Dosage: 10 000 UNITS 3X PER WEEK
     Dates: start: 202405

REACTIONS (1)
  - Injection site swelling [Unknown]

NARRATIVE: CASE EVENT DATE: 20240403
